FAERS Safety Report 6469952-2 (Version None)
Quarter: 2009Q4

REPORT INFORMATION
  Report Type: 
  Country: None (occurrence: None)
  Receive Date: 20091203
  Receipt Date: 20071228
  Transmission Date: 20100525
  Serious: Yes (Hospitalization)
  Sender: FDA-Public Use
  Company Number: US-ELI_LILLY_AND_COMPANY-US200711004361

PATIENT
  Sex: Female
  Weight: 136.51 kg

DRUGS (15)
  1. BYETTA [Suspect]
     Indication: TYPE 2 DIABETES MELLITUS
     Dosage: 5 UG, 2/D
     Route: 058
     Dates: start: 20060601, end: 20060701
  2. BYETTA [Suspect]
     Dosage: 10 UG, 2/D
     Route: 058
     Dates: start: 20060701, end: 20070427
  3. GLYBURIDE [Concomitant]
     Indication: TYPE 2 DIABETES MELLITUS
     Dosage: 10 MG, 2/D
     Route: 065
     Dates: start: 20050101
  4. GLUCOPHAGE [Concomitant]
     Indication: TYPE 2 DIABETES MELLITUS
     Dosage: 1000 MG, 2/D
     Route: 065
  5. DIOVAN /SCH/ [Concomitant]
     Indication: HYPERTENSION
     Dosage: 80 MG, UNKNOWN
     Route: 048
  6. COREG [Concomitant]
     Indication: CARDIAC DISORDER
     Dosage: 6.25 MG, 2/D
     Route: 048
  7. LEVOTHROID [Concomitant]
     Indication: HYPOTHYROIDISM
     Dosage: 150 UG, DAILY (1/D)
     Route: 048
  8. DIGITEK [Concomitant]
     Indication: ATRIAL FIBRILLATION
     Dosage: 250 UG, DAILY (1/D)
     Route: 048
  9. LASIX [Concomitant]
     Dosage: 40 MG, DAILY (1/D)
  10. POTASSIUM [Concomitant]
     Dosage: 20 MEQ, DAILY (1/D)
  11. DILTIAZEM [Concomitant]
     Dosage: 300 MG, DAILY (1/D)
     Route: 065
  12. NITROGLYCERIN [Concomitant]
     Dosage: UNK, AS NEEDED
     Route: 065
  13. PEPCID [Concomitant]
     Dosage: 40 MG, DAILY (1/D)
  14. AMBIEN [Concomitant]
     Dosage: 5 MG, AS NEEDED
     Route: 065
  15. COUMADIN [Concomitant]
     Indication: ATRIAL FIBRILLATION
     Dosage: 3 MG, DAILY (1/D)
     Route: 048

REACTIONS (6)
  - BILE DUCT STONE [None]
  - FISTULA [None]
  - HEPATIC STEATOSIS [None]
  - PANCREATITIS [None]
  - SPLENOMEGALY [None]
  - WEIGHT DECREASED [None]
